FAERS Safety Report 23080414 (Version 1)
Quarter: 2023Q4

REPORT INFORMATION
  Report Type: Spontaneous
  Country: IT (occurrence: IT)
  Receive Date: 20231018
  Receipt Date: 20231018
  Transmission Date: 20240109
  Serious: Yes (Other)
  Sender: FDA-Public Use
  Company Number: IT-JNJFOC-20231029211

PATIENT
  Age: 38 Year
  Sex: Female

DRUGS (1)
  1. HALDOL [Suspect]
     Active Substance: HALOPERIDOL
     Indication: Product used for unknown indication
     Dosage: 30 ML BOTTLE
     Route: 048

REACTIONS (4)
  - Intentional self-injury [Unknown]
  - Myoclonus [Unknown]
  - Metabolic acidosis [Unknown]
  - Somnolence [Unknown]
